FAERS Safety Report 10229265 (Version 1)
Quarter: 2014Q2

REPORT INFORMATION
  Report Type: Spontaneous
  Country: US (occurrence: US)
  Receive Date: 20140611
  Receipt Date: 20140611
  Transmission Date: 20141212
  Serious: No
  Sender: FDA-Public Use
  Company Number: US-BIOGENIDEC-2014BI054502

PATIENT
  Sex: Female

DRUGS (1)
  1. TYSABRI [Suspect]
     Indication: MULTIPLE SCLEROSIS
     Route: 042
     Dates: start: 20090910

REACTIONS (6)
  - Scoliosis [Not Recovered/Not Resolved]
  - Balance disorder [Unknown]
  - Coordination abnormal [Not Recovered/Not Resolved]
  - Spinal deformity [Unknown]
  - Peroneal nerve palsy [Unknown]
  - Memory impairment [Unknown]
